FAERS Safety Report 8325575-1 (Version None)
Quarter: 2012Q2

REPORT INFORMATION
  Report Type: 
  Country: None (occurrence: None)
  Receive Date: 20120501
  Receipt Date: 20120418
  Transmission Date: 20120825
  Serious: Yes (Hospitalization)
  Sender: FDA-Public Use
  Company Number: CN-JNJFOC-20111108909

PATIENT
  Sex: Male

DRUGS (3)
  1. REMICADE [Suspect]
     Dosage: 7TH INFUSION  DOSE INTERVAL: 28
     Route: 042
     Dates: end: 20111121
  2. REMICADE [Suspect]
     Indication: ANKYLOSING SPONDYLITIS
     Dosage: 5TH AND 6TH INFUSION
     Route: 042
  3. REMICADE [Suspect]
     Route: 042

REACTIONS (3)
  - SYSTEMIC LUPUS ERYTHEMATOSUS [None]
  - ARTHROPATHY [None]
  - DRUG EFFECT DECREASED [None]
